FAERS Safety Report 24727868 (Version 2)
Quarter: 2024Q4

REPORT INFORMATION
  Report Type: Spontaneous
  Country: MO (occurrence: MO)
  Receive Date: 20241212
  Receipt Date: 20241218
  Transmission Date: 20250115
  Serious: Yes (Other)
  Sender: AMGEN
  Company Number: CN-AMGEN-CHNSP2024240686

PATIENT
  Age: 23 Year
  Sex: Female

DRUGS (13)
  1. XGEVA [Suspect]
     Active Substance: DENOSUMAB
     Indication: Metastases to bone
     Dosage: 120 MILLIGRAM, Q4WK
     Route: 058
     Dates: start: 202204
  2. LEUPROLIDE [Concomitant]
     Active Substance: LEUPROLIDE
     Indication: Triple positive breast cancer
     Dosage: 11.25 MILLIGRAM, Q3MO
     Route: 030
     Dates: start: 201602
  3. LEUPROLIDE [Concomitant]
     Active Substance: LEUPROLIDE
     Indication: Invasive ductal breast carcinoma
     Dosage: 11.25 MILLIGRAM, Q3MO
     Route: 030
     Dates: start: 201611
  4. LEUPROLIDE [Concomitant]
     Active Substance: LEUPROLIDE
     Indication: Breast cancer metastatic
     Dosage: 11.25 MILLIGRAM, Q3MO
     Route: 030
     Dates: start: 202008
  5. LEUPROLIDE [Concomitant]
     Active Substance: LEUPROLIDE
     Dosage: 11.25 MILLIGRAM, Q3MO
     Route: 030
     Dates: start: 202203
  6. LETROZOLE [Concomitant]
     Active Substance: LETROZOLE
     Indication: Triple positive breast cancer
     Dosage: 2.5 MILLIGRAM, QD
     Route: 048
     Dates: start: 201611
  7. LETROZOLE [Concomitant]
     Active Substance: LETROZOLE
     Indication: Invasive ductal breast carcinoma
     Dosage: 2.5 MILLIGRAM, QD
     Route: 048
     Dates: start: 202203
  8. LETROZOLE [Concomitant]
     Active Substance: LETROZOLE
     Indication: Breast cancer metastatic
  9. CAPECITABINE [Concomitant]
     Active Substance: CAPECITABINE
     Indication: Breast cancer metastatic
     Dosage: 1000 MILLIGRAM, BID (DAY 1-14 Q3W (2 WEEKS ON, 1 WEEK OFF])
     Route: 065
     Dates: start: 202008
  10. CAPECITABINE [Concomitant]
     Active Substance: CAPECITABINE
     Dosage: 1000 MILLIGRAM, BID [FOR DAY 1-14 Q3W (2 WEEKS ON, 1 WEEK OFF)]
     Route: 065
     Dates: start: 202203
  11. NERATINIB [Concomitant]
     Active Substance: NERATINIB
     Indication: Breast cancer metastatic
     Dosage: 120 MILLIGRAM, QD (FOR 2 WEEKS)
     Route: 065
     Dates: start: 202203
  12. NERATINIB [Concomitant]
     Active Substance: NERATINIB
     Dosage: 160 MILLIGRAM, QD (FOR 1 WEEK)
     Route: 065
  13. NERATINIB [Concomitant]
     Active Substance: NERATINIB
     Dosage: 240 MILLIGRAM, QD
     Route: 065

REACTIONS (3)
  - Breast cancer metastatic [Recovering/Resolving]
  - Pathological fracture [Unknown]
  - Spinal stenosis [Unknown]
